FAERS Safety Report 11057986 (Version 1)
Quarter: 2015Q2

REPORT INFORMATION
  Report Type: Spontaneous
  Country: US (occurrence: None)
  Receive Date: 20150421
  Receipt Date: 20150421
  Transmission Date: 20150821
  Serious: Yes (Other)
  Sender: FDA-Public Use
  Company Number: 2014US010626

PATIENT
  Age: 64 Year

DRUGS (3)
  1. VELCADE [Suspect]
     Active Substance: BORTEZOMIB
     Indication: PLASMA CELL MYELOMA
     Route: 040
     Dates: start: 20100405, end: 20100527
  2. DOXIL [Suspect]
     Active Substance: DOXORUBICIN HYDROCHLORIDE
     Indication: PLASMA CELL MYELOMA
     Route: 042
     Dates: start: 20100405, end: 20100524
  3. ALOXI [Suspect]
     Active Substance: PALONOSETRON HYDROCHLORIDE
     Indication: PROPHYLAXIS OF NAUSEA AND VOMITING
     Route: 042
     Dates: start: 20100405, end: 20100527

REACTIONS (3)
  - Humerus fracture [None]
  - Acute kidney injury [None]
  - Muscular weakness [None]

NARRATIVE: CASE EVENT DATE: 20100606
